FAERS Safety Report 8818578 (Version 1)
Quarter: 2012Q4

REPORT INFORMATION
  Report Type: 
  Country: SE (occurrence: SE)
  Receive Date: 20121001
  Receipt Date: 20121001
  Transmission Date: 20130627
  Serious: Yes (Hospitalization)
  Sender: FDA-Public Use
  Company Number: SE-PFIZER INC-2012237635

PATIENT
  Age: 75 Year
  Sex: Male
  Weight: 88 kg

DRUGS (14)
  1. GENOTROPIN [Suspect]
     Indication: GROWTH HORMONE DEFICIENCY
     Dosage: 0.3 mg/day, 7 injections/week
     Route: 058
     Dates: start: 20020513
  2. SINALFA [Concomitant]
     Indication: BENIGN PROSTATIC HYPERPLASIA
     Dosage: UNK
     Dates: start: 19960615
  3. DETRUSITOL [Concomitant]
     Indication: PROSTATIC DISORDER
     Dosage: UNK
     Dates: start: 19961001
  4. PRIMODIUM [Concomitant]
     Indication: DIARRHOEA INFECTIOUS
     Dosage: UNK
     Dates: start: 19970630
  5. VENTOLINE DEPOT [Concomitant]
     Indication: ASTHMA
     Dosage: UNK
     Dates: start: 20030819
  6. TENORMIN [Concomitant]
     Indication: HYPERTENSIVE HEART DISEASE
     Dosage: UNK
     Dates: start: 19960615
  7. LEVAXIN [Concomitant]
     Indication: HYPOTHYROIDISM
     Dosage: UNK
     Dates: start: 20010201
  8. TESTOVIRON-DEPOT [Concomitant]
     Indication: BLOOD LUTEINISING HORMONE DECREASED
     Dosage: UNK
     Dates: start: 20030108
  9. TESTOVIRON-DEPOT [Concomitant]
     Indication: BLOOD FOLLICLE STIMULATING HORMONE DECREASED
  10. TESTOVIRON-DEPOT [Concomitant]
     Indication: HYPOGONADISM MALE
  11. EFEXOR [Concomitant]
     Indication: DEPRESSION
     Dosage: UNK
     Dates: start: 19951215
  12. SYMBICORT TURBUHALER ^DRACO^ [Concomitant]
     Indication: ASTHMA
     Dosage: UNK
     Dates: start: 20030819
  13. LITHIONIT [Concomitant]
     Indication: GENERAL SYMPTOM
     Dosage: UNK
     Dates: start: 19970915
  14. CLARITYN [Concomitant]
     Indication: HYPERSENSITIVITY
     Dosage: UNK
     Dates: start: 20030819

REACTIONS (1)
  - Parathyroid disorder [Unknown]
